FAERS Safety Report 23457679 (Version 1)
Quarter: 2024Q1

REPORT INFORMATION
  Report Type: Spontaneous
  Country: NL (occurrence: NL)
  Receive Date: 20240130
  Receipt Date: 20240130
  Transmission Date: 20240410
  Serious: Yes (Hospitalization)
  Sender: FDA-Public Use
  Company Number: None

PATIENT
  Age: 57 Year
  Sex: Male
  Weight: 150 kg

DRUGS (11)
  1. XARELTO [Suspect]
     Active Substance: RIVAROXABAN
     Indication: Product used for unknown indication
     Dosage: 20 MG, QD
     Route: 048
     Dates: start: 20191009
  2. SPIRONOLACTONE [Concomitant]
     Active Substance: SPIRONOLACTONE
     Dosage: TABLET, 12,5 MG (MILLIGRAM)
  3. SOTALOL [Concomitant]
     Active Substance: SOTALOL
     Dosage: TABLET, 80 MG (MILLIGRAM)
  4. OXYCODONE [Concomitant]
     Active Substance: OXYCODONE\OXYCODONE HYDROCHLORIDE
     Dosage: TABLET MET GEREGULEERDE AFGIFTE, 10 MG (MILLIGRAM)
  5. LERCANIDIPINE [Concomitant]
     Active Substance: LERCANIDIPINE
     Dosage: OMHULDE TABLET, 10 MG (MILLIGRAM)
  6. FUROSEMIDE [Concomitant]
     Active Substance: FUROSEMIDE
     Dosage: TABLET, 40 MG (MILLIGRAM)
  7. BUDESONIDE [Concomitant]
     Active Substance: BUDESONIDE
     Dosage: INHALATIEPOEDER, 400 UG (MICROGRAM)
  8. FLUTICASONE [Concomitant]
     Active Substance: FLUTICASONE
     Dosage: AEROSOL, 50 UG/DOSIS (MICROGRAM PER DOSIS)
  9. ALBUTEROL [Concomitant]
     Active Substance: ALBUTEROL
     Dosage: INHALATIEPOEDER, 200 UG/DOSIS (MICROGRAM PER DOSIS)
  10. PERINDOPRIL [Concomitant]
     Active Substance: PERINDOPRIL
     Dosage: TABLET, 4 MG (MILLIGRAM)
  11. PANTOPRAZOLE SODIUM [Concomitant]
     Active Substance: PANTOPRAZOLE SODIUM
     Dosage: MAAGSAPRESISTENTE TABLET, 40 MG (MILLIGRAM)

REACTIONS (2)
  - Compartment syndrome [Recovering/Resolving]
  - Muscle haemorrhage [Recovering/Resolving]
